FAERS Safety Report 5001081-7 (Version None)
Quarter: 2006Q1

REPORT INFORMATION
  Report Type: 
  Country: None (occurrence: None)
  Receive Date: 20060315
  Receipt Date: 20060210
  Transmission Date: 20060701
  Serious: Yes (Other)
  Sender: FDA-Public Use
  Company Number: 436323

PATIENT
  Sex: Female

DRUGS (1)
  1. BONIVA [Suspect]

REACTIONS (3)
  - ARTHRALGIA [None]
  - BONE PAIN [None]
  - CHILLS [None]
